FAERS Safety Report 5469234-1 (Version None)
Quarter: 2007Q3

REPORT INFORMATION
  Report Type: 
  Country: None (occurrence: None)
  Receive Date: 20070927
  Receipt Date: 20070920
  Transmission Date: 20080115
  Serious: Yes (Death, Hospitalization)
  Sender: FDA-Public Use
  Company Number: US-AVENTIS-200712949GDDC

PATIENT
  Age: 59 Year
  Sex: Male
  Weight: 72 kg

DRUGS (2)
  1. DOCETAXEL [Suspect]
     Dosage: DOSE: 118 MG AS TOTAL DOSE ADMINISTERED THIS COURSE
     Route: 042
     Dates: start: 20070319, end: 20070326
  2. CODE UNBROKEN [Suspect]
     Dosage: DOSE: 3250 AS TOTAL DOSE ADMINISTERED THIS COURSE
     Route: 048
     Dates: start: 20070319, end: 20070401

REACTIONS (2)
  - PNEUMONIA [None]
  - RESPIRATORY FAILURE [None]
